FAERS Safety Report 11827890 (Version 1)
Quarter: 2015Q4

REPORT INFORMATION
  Report Type: Spontaneous
  Country: US (occurrence: US)
  Receive Date: 20151211
  Receipt Date: 20151211
  Transmission Date: 20160305
  Serious: No
  Sender: FDA-Public Use
  Company Number: PHEH2001US07553

PATIENT
  Age: 73 Year
  Sex: Female
  Weight: 58.96 kg

DRUGS (9)
  1. PREVACID [Concomitant]
     Active Substance: LANSOPRAZOLE
     Dosage: UNK, UNK
  2. FLUOROURACIL. [Concomitant]
     Active Substance: FLUOROURACIL
  3. NEUPOGEN [Concomitant]
     Active Substance: FILGRASTIM
  4. LEUCOVORIN. [Concomitant]
     Active Substance: LEUCOVORIN
  5. CAMPTOSAR [Concomitant]
     Active Substance: IRINOTECAN HYDROCHLORIDE
  6. PROCRIT [Concomitant]
     Active Substance: ERYTHROPOIETIN
  7. VIOXX [Concomitant]
     Active Substance: ROFECOXIB
  8. PERCOCET [Concomitant]
     Active Substance: ACETAMINOPHEN\OXYCODONE HYDROCHLORIDE
  9. SANDOSTATIN LAR DEPOT [Suspect]
     Active Substance: OCTREOTIDE ACETATE
     Indication: DIARRHOEA
     Dosage: 30 MG, QMO
     Route: 030
     Dates: start: 20010827, end: 20010827

REACTIONS (3)
  - Pain [Recovering/Resolving]
  - Injection site reaction [Recovering/Resolving]
  - Blister [Recovering/Resolving]

NARRATIVE: CASE EVENT DATE: 20010828
